FAERS Safety Report 19971902 (Version 1)
Quarter: 2021Q4

REPORT INFORMATION
  Report Type: Report from Study
  Country: GB (occurrence: GB)
  Receive Date: 20211020
  Receipt Date: 20211020
  Transmission Date: 20220303
  Serious: Yes (Other)
  Sender: FDA-Public Use
  Company Number: GB-LEO PHARMA-317708

PATIENT
  Age: 20 Year
  Sex: Female
  Weight: 56.2 kg

DRUGS (3)
  1. BRODALUMAB [Suspect]
     Active Substance: BRODALUMAB
     Indication: Psoriasis
     Dosage: 210 MG AT WEEKS 0, 1, AND 2, FOLLOWED BY 210 MG EVERY 2 WEEKS
     Route: 058
     Dates: start: 201810, end: 20190313
  2. BRODALUMAB [Suspect]
     Active Substance: BRODALUMAB
     Dosage: 210 MG AT WEEKS 0, 1, AND 2, FOLLOWED BY 210 MG EVERY 2 WEEKS
     Route: 058
     Dates: start: 20210208
  3. CITALOPRAM [Concomitant]
     Active Substance: CITALOPRAM HYDROBROMIDE
     Indication: Product used for unknown indication

REACTIONS (1)
  - Maternal exposure during pregnancy [Unknown]

NARRATIVE: CASE EVENT DATE: 20190301
